FAERS Safety Report 12852600 (Version 1)
Quarter: 2016Q4

REPORT INFORMATION
  Report Type: Spontaneous
  Country: US (occurrence: US)
  Receive Date: 20161015
  Receipt Date: 20161015
  Transmission Date: 20170207
  Serious: Yes (Other)
  Sender: FDA-Public Use
  Company Number: None

PATIENT
  Age: 48 Year
  Sex: Male
  Weight: 72.9 kg

DRUGS (4)
  1. ADVIL [Concomitant]
     Active Substance: IBUPROFEN
  2. AMPHETAMINE SALT COMBO [Concomitant]
  3. TYLENOL [Concomitant]
     Active Substance: ACETAMINOPHEN
  4. BUPROPION XL 300MG TABLETS ZYDUS [Suspect]
     Active Substance: BUPROPION
     Indication: MAJOR DEPRESSION
     Dosage: OTHER DAILY ORAL 30 TABLETS
     Route: 048
     Dates: start: 20161010, end: 20161015

REACTIONS (3)
  - Depression [None]
  - Withdrawal syndrome [None]
  - Irritability [None]

NARRATIVE: CASE EVENT DATE: 20161012
